FAERS Safety Report 17962221 (Version 3)
Quarter: 2020Q3

REPORT INFORMATION
  Report Type: Spontaneous
  Country: NL (occurrence: NL)
  Receive Date: 20200630
  Receipt Date: 20200724
  Transmission Date: 20201103
  Serious: Yes (Death, Other)
  Sender: FDA-Public Use
  Company Number: NL-ASTELLAS-2020US021778

PATIENT
  Age: 70 Year
  Sex: Male

DRUGS (1)
  1. GILTERITINIB [Suspect]
     Active Substance: GILTERITINIB
     Indication: ACUTE MYELOID LEUKAEMIA RECURRENT
     Route: 065

REACTIONS (3)
  - Acute myeloid leukaemia [Fatal]
  - Erysipelas [Not Recovered/Not Resolved]
  - Peau d^orange [Not Recovered/Not Resolved]

NARRATIVE: CASE EVENT DATE: 20200528
